FAERS Safety Report 14456695 (Version 5)
Quarter: 2019Q1

REPORT INFORMATION
  Report Type: Spontaneous
  Country: US (occurrence: US)
  Receive Date: 20180130
  Receipt Date: 20190130
  Transmission Date: 20190417
  Serious: Yes (Death, Other)
  Sender: FDA-Public Use
  Company Number: US-ASTRAZENECA-2018SE10861

PATIENT
  Age: 20615 Day
  Sex: Male

DRUGS (47)
  1. ALBUTEROL. [Concomitant]
     Active Substance: ALBUTEROL
     Dosage: 90MCG
     Route: 048
     Dates: start: 19990617
  2. OXYCODONE [Concomitant]
     Active Substance: OXYCODONE
     Indication: PAIN
     Route: 048
     Dates: start: 2012, end: 2015
  3. INSULIN [Concomitant]
     Active Substance: INSULIN NOS
     Indication: DIABETES MELLITUS
     Route: 065
     Dates: start: 2012, end: 2017
  4. INSULIN [Concomitant]
     Active Substance: INSULIN NOS
     Indication: DIABETES MELLITUS
     Route: 065
     Dates: start: 2003, end: 2017
  5. PRAVASTATIN. [Concomitant]
     Active Substance: PRAVASTATIN
     Indication: LIPIDS ABNORMAL
     Route: 065
     Dates: start: 2011, end: 2013
  6. CAPSAICIN. [Concomitant]
     Active Substance: CAPSAICIN
     Dosage: 0.0.75 PERCENT
     Route: 065
  7. PRILOSEC [Suspect]
     Active Substance: OMEPRAZOLE MAGNESIUM
     Indication: GASTROOESOPHAGEAL REFLUX DISEASE
     Dosage: FROM MEDICAL RECORD
     Route: 048
     Dates: start: 20040316
  8. PREVACID [Suspect]
     Active Substance: LANSOPRAZOLE
     Indication: GASTROOESOPHAGEAL REFLUX DISEASE
     Route: 048
     Dates: start: 2000, end: 2009
  9. GATIFLOXACIN. [Concomitant]
     Active Substance: GATIFLOXACIN
     Route: 048
     Dates: start: 20030903
  10. PREDNISONE. [Concomitant]
     Active Substance: PREDNISONE
     Route: 048
     Dates: start: 20110512
  11. PYRIDOXINE HYDROCHLORIDE. [Concomitant]
     Active Substance: PYRIDOXINE HYDROCHLORIDE
     Route: 048
     Dates: start: 20110628
  12. CIPROFLOXACIN. [Concomitant]
     Active Substance: CIPROFLOXACIN
     Route: 048
     Dates: start: 20111021
  13. FORMOTEROL FUMARATE [Concomitant]
     Active Substance: FORMOTEROL FUMARATE
     Route: 065
     Dates: start: 20031001
  14. ROLAIDS [Concomitant]
     Active Substance: CALCIUM CARBONATE\MAGNESIUM HYDROXIDE
     Route: 065
  15. MAALOX ANTACID [Concomitant]
     Active Substance: ALUMINUM HYDROXIDE\DIMETHICONE\MAGNESIUM HYDROXIDE
     Route: 065
  16. LANSOPRAZOLE. [Concomitant]
     Active Substance: LANSOPRAZOLE
     Route: 048
     Dates: start: 20110607
  17. DIPHENHYDRAMINE HYDROCHLORIDE. [Concomitant]
     Active Substance: DIPHENHYDRAMINE HYDROCHLORIDE
     Route: 048
     Dates: start: 20110824
  18. PREVACID [Suspect]
     Active Substance: LANSOPRAZOLE
     Indication: GASTROOESOPHAGEAL REFLUX DISEASE
     Route: 048
     Dates: start: 20001121
  19. ZANTAC [Concomitant]
     Active Substance: RANITIDINE HYDROCHLORIDE
     Dosage: 150
     Route: 048
     Dates: start: 2003, end: 2004
  20. GLYBURIDE. [Concomitant]
     Active Substance: GLYBURIDE
     Route: 048
     Dates: start: 20000117
  21. PREVACID [Suspect]
     Active Substance: LANSOPRAZOLE
     Indication: GASTROOESOPHAGEAL REFLUX DISEASE
     Route: 065
     Dates: start: 2002, end: 2009
  22. PREVACID [Suspect]
     Active Substance: LANSOPRAZOLE
     Indication: GASTROOESOPHAGEAL REFLUX DISEASE
     Dosage: GENERIC
     Route: 048
     Dates: start: 2010, end: 2017
  23. ROSIGLITAZONE MALEATE. [Concomitant]
     Active Substance: ROSIGLITAZONE MALEATE
     Indication: DIABETES MELLITUS
     Route: 048
     Dates: start: 20000427, end: 2009
  24. IRBESARTAN. [Concomitant]
     Active Substance: IRBESARTAN
     Route: 048
     Dates: start: 20010308
  25. RABEPRAZOLE [Concomitant]
     Active Substance: RABEPRAZOLE
     Route: 048
     Dates: start: 20010719
  26. FOSINOPRIL [Concomitant]
     Active Substance: FOSINOPRIL
     Route: 048
     Dates: start: 19990917
  27. NEXIUM [Suspect]
     Active Substance: ESOMEPRAZOLE MAGNESIUM
     Indication: GASTROOESOPHAGEAL REFLUX DISEASE
     Route: 048
     Dates: start: 2000, end: 2009
  28. NEXIUM [Suspect]
     Active Substance: ESOMEPRAZOLE MAGNESIUM
     Indication: GASTROOESOPHAGEAL REFLUX DISEASE
     Route: 048
     Dates: start: 2002, end: 2009
  29. RANITIDINE. [Concomitant]
     Active Substance: RANITIDINE
     Route: 048
     Dates: start: 20000117
  30. ROSIGLITAZONE MALEATE. [Concomitant]
     Active Substance: ROSIGLITAZONE MALEATE
     Indication: DIABETES MELLITUS
     Route: 065
     Dates: start: 2000, end: 2009
  31. TRIAMCINOLONE [Concomitant]
     Active Substance: TRIAMCINOLONE
     Route: 048
     Dates: start: 20030903
  32. ATORVASTATIN CALCIUM. [Concomitant]
     Active Substance: ATORVASTATIN CALCIUM
     Indication: BLOOD CHOLESTEROL INCREASED
     Route: 048
     Dates: start: 2014, end: 2017
  33. PRILOSEC [Suspect]
     Active Substance: OMEPRAZOLE MAGNESIUM
     Indication: GASTROOESOPHAGEAL REFLUX DISEASE
     Route: 048
     Dates: start: 2000, end: 2009
  34. PROTONIX [Suspect]
     Active Substance: PANTOPRAZOLE SODIUM
     Indication: GASTROOESOPHAGEAL REFLUX DISEASE
     Route: 048
     Dates: start: 2005, end: 2011
  35. GEMFIBROZIL. [Concomitant]
     Active Substance: GEMFIBROZIL
     Route: 048
     Dates: start: 20000117
  36. CLOTRIMAZOLE. [Concomitant]
     Active Substance: CLOTRIMAZOLE
     Dosage: 1% TOP CREAM
     Dates: start: 20111021
  37. NEXIUM [Suspect]
     Active Substance: ESOMEPRAZOLE MAGNESIUM
     Indication: GASTROOESOPHAGEAL REFLUX DISEASE
     Route: 048
     Dates: start: 2004, end: 2006
  38. PRILOSEC [Suspect]
     Active Substance: OMEPRAZOLE MAGNESIUM
     Indication: GASTROOESOPHAGEAL REFLUX DISEASE
     Dosage: GENERIC
     Route: 048
     Dates: start: 2003, end: 2005
  39. PROTONIX [Suspect]
     Active Substance: PANTOPRAZOLE SODIUM
     Indication: GASTROOESOPHAGEAL REFLUX DISEASE
     Route: 065
     Dates: start: 2000, end: 2009
  40. PROTONIX [Suspect]
     Active Substance: PANTOPRAZOLE SODIUM
     Indication: GASTROOESOPHAGEAL REFLUX DISEASE
     Dosage: MEDICAL RECORD
     Route: 048
     Dates: start: 20050802
  41. ATENOLOL. [Concomitant]
     Active Substance: ATENOLOL
     Dosage: 90MCG
     Route: 048
     Dates: start: 20000117
  42. FOSINOPRIL [Concomitant]
     Active Substance: FOSINOPRIL
     Route: 048
     Dates: start: 20000616
  43. METFORMIN [Concomitant]
     Active Substance: METFORMIN HYDROCHLORIDE
     Route: 048
     Dates: start: 20011109
  44. VALSARTAN. [Concomitant]
     Active Substance: VALSARTAN
     Route: 048
     Dates: start: 20051014
  45. DIPHENHYDRAMINE HYDROCHLORIDE. [Concomitant]
     Active Substance: DIPHENHYDRAMINE HYDROCHLORIDE
     Route: 048
     Dates: start: 20080808
  46. TAMSULOSIN [Concomitant]
     Active Substance: TAMSULOSIN
     Indication: PROSTATOMEGALY
     Route: 048
     Dates: start: 2011, end: 2017
  47. TUMS [Concomitant]
     Active Substance: CALCIUM CARBONATE
     Route: 065

REACTIONS (6)
  - Renal impairment [Unknown]
  - Chronic kidney disease [Unknown]
  - Renal failure [Unknown]
  - End stage renal disease [Fatal]
  - Renal injury [Unknown]
  - Acute kidney injury [Fatal]

NARRATIVE: CASE EVENT DATE: 20010214
